FAERS Safety Report 26193490 (Version 1)
Quarter: 2025Q4

REPORT INFORMATION
  Report Type: Spontaneous
  Country: JP (occurrence: JP)
  Receive Date: 20251224
  Receipt Date: 20251224
  Transmission Date: 20260118
  Serious: Yes (Other)
  Sender: ARDELYX
  Company Number: JP-ARDELYX-2025ARDX009419

PATIENT
  Age: 67 Year
  Sex: Male

DRUGS (1)
  1. TENAPANOR HYDROCHLORIDE [Suspect]
     Active Substance: TENAPANOR HYDROCHLORIDE
     Indication: Product used for unknown indication
     Dosage: UNK
     Route: 048
     Dates: start: 202507

REACTIONS (2)
  - Diverticulitis [Unknown]
  - Diarrhoea [Unknown]
